FAERS Safety Report 17230888 (Version 3)
Quarter: 2020Q1

REPORT INFORMATION
  Report Type: Spontaneous
  Country: CZ (occurrence: CZ)
  Receive Date: 20200103
  Receipt Date: 20200312
  Transmission Date: 20200409
  Serious: Yes (Other)
  Sender: FDA-Public Use
  Company Number: CZ-INDIVIOR LIMITED-INDV-123014-2019

PATIENT
  Sex: Male

DRUGS (4)
  1. TRANSTEC [Suspect]
     Active Substance: BUPRENORPHINE
     Indication: ARTHRALGIA
     Dosage: 35 UG, PER HOUR
     Route: 065
  2. TRANSTEC [Suspect]
     Active Substance: BUPRENORPHINE
     Dosage: 52.5 UG PER HOUR (RE-INITIATED AFTER TWO WEEKS)
     Route: 065
     Dates: start: 2017
  3. SUBUTEX [Suspect]
     Active Substance: BUPRENORPHINE HYDROCHLORIDE
     Indication: DRUG DEPENDENCE
     Dosage: 8 MG, UNK
     Route: 065
     Dates: start: 2010, end: 2016
  4. TRANSTEC [Suspect]
     Active Substance: BUPRENORPHINE
     Dosage: 52.5 UG PER HOUR
     Route: 065
     Dates: end: 2017

REACTIONS (12)
  - Arthralgia [Unknown]
  - Arthritis [Unknown]
  - Insomnia [Recovering/Resolving]
  - Neuralgia [Unknown]
  - Pneumonia [Unknown]
  - Drug withdrawal syndrome [Unknown]
  - Endocarditis [Unknown]
  - Osteonecrosis [Unknown]
  - Pain in extremity [Unknown]
  - Localised infection [Unknown]
  - Septic pulmonary embolism [Unknown]
  - Hip arthroplasty [Recovered/Resolved]

NARRATIVE: CASE EVENT DATE: 2010
